FAERS Safety Report 6089070-5 (Version None)
Quarter: 2009Q1

REPORT INFORMATION
  Report Type: 
  Country: None (occurrence: None)
  Receive Date: 20090224
  Receipt Date: 20090218
  Transmission Date: 20090719
  Serious: Yes (Other)
  Sender: FDA-Public Use
  Company Number: B0561199A

PATIENT
  Age: 10 Year
  Sex: Female

DRUGS (1)
  1. AUGMENTIN '125' [Suspect]
     Indication: ALLERGY TEST
     Route: 048
     Dates: start: 20090212, end: 20090213

REACTIONS (8)
  - BLINDNESS [None]
  - DIZZINESS [None]
  - EXPIRED DRUG ADMINISTERED [None]
  - HEART RATE DECREASED [None]
  - HYPOTENSION [None]
  - MALAISE [None]
  - VISION BLURRED [None]
  - VOMITING [None]
